FAERS Safety Report 5948280-5 (Version None)
Quarter: 2008Q4

REPORT INFORMATION
  Report Type: 
  Country: None (occurrence: None)
  Receive Date: 20081111
  Receipt Date: 20081104
  Transmission Date: 20090506
  Serious: Yes (Hospitalization, Other)
  Sender: FDA-Public Use
  Company Number: US-ELI_LILLY_AND_COMPANY-US200811001360

PATIENT
  Sex: Female

DRUGS (2)
  1. HUMALOG [Suspect]
     Indication: DIABETES MELLITUS
     Dosage: 78 U, UNK
  2. ACTOS [Concomitant]
     Indication: DIABETES MELLITUS

REACTIONS (6)
  - ABDOMINAL PAIN UPPER [None]
  - AORTIC VALVE REPLACEMENT [None]
  - CORONARY ARTERY BYPASS [None]
  - DIVERTICULITIS [None]
  - FEELING ABNORMAL [None]
  - MEMORY IMPAIRMENT [None]
